FAERS Safety Report 14690153 (Version 1)
Quarter: 2018Q1

REPORT INFORMATION
  Report Type: Spontaneous
  Country: GB (occurrence: GB)
  Receive Date: 20180328
  Receipt Date: 20180328
  Transmission Date: 20180509
  Serious: Yes (Other)
  Sender: FDA-Public Use
  Company Number: GB-TEVA-2018-GB-875557

PATIENT
  Age: 87 Year
  Sex: Female
  Weight: 77 kg

DRUGS (16)
  1. BISOPROLOL [Concomitant]
     Active Substance: BISOPROLOL
     Dosage: 1 DOSAGE FORMS DAILY;
     Route: 065
  2. ARNICA [Concomitant]
     Active Substance: ARNICA MONTANA FLOWER
     Dosage: AS REQUIRED
     Route: 065
  3. PROTOPIC OINTMENT 0.3 MG/G [Concomitant]
     Dosage: 1 DOSAGE FORMS DAILY; AS AN ALTERNATIVE TO BETNOVATE
     Route: 065
  4. CETRABEN EMOLLIENT CREAM [Concomitant]
     Dosage: 2 DOSAGE FORMS DAILY;
     Route: 065
  5. CETIRIZINE [Concomitant]
     Active Substance: CETIRIZINE HYDROCHLORIDE
     Dosage: 10 MILLIGRAM DAILY;
     Route: 065
  6. COPPER [Concomitant]
     Active Substance: COPPER
     Route: 065
  7. FUROSEMIDE. [Concomitant]
     Active Substance: FUROSEMIDE
     Dosage: 20 MILLIGRAM DAILY; IN THE MORNING FOR AT LEAST 1 DAY PRIOR TO STARTING BISOPROLOL
     Route: 065
  8. BETNOVATE [Concomitant]
     Active Substance: BETAMETHASONE
     Dosage: 1 DOSAGE FORMS DAILY;
     Route: 065
  9. FERROUS FUMARATE [Concomitant]
     Active Substance: FERROUS FUMARATE
     Dosage: 2-3 TIMES A DAY
     Route: 065
  10. BENDROFLUMETHIAZIDE [Concomitant]
     Active Substance: BENDROFLUMETHIAZIDE
     Dosage: 2.5 MILLIGRAM DAILY;
     Route: 065
  11. LISINOPRIL. [Concomitant]
     Active Substance: LISINOPRIL
     Dosage: 20 MILLIGRAM DAILY;
     Route: 065
  12. XARELTO [Concomitant]
     Active Substance: RIVAROXABAN
     Dosage: 20 MILLIGRAM DAILY;
     Route: 065
  13. PARACETAMOL [Concomitant]
     Active Substance: ACETAMINOPHEN
     Dosage: 1 TO 2 TABLETS UP TO FOUR TIMES DAILY AS REQUIRED
     Route: 065
  14. ENALAPRIL [Suspect]
     Active Substance: ENALAPRIL
     Indication: CARDIAC FAILURE
     Route: 065
  15. ARNICA [Concomitant]
     Active Substance: ARNICA MONTANA FLOWER
     Dosage: 21 GTT DAILY; 7 DROPS 3 TIMES DAILY
     Route: 065
  16. ACETYLSALICYLIC ACID [Concomitant]
     Active Substance: ASPIRIN
     Dosage: 75 MILLIGRAM DAILY;
     Route: 065

REACTIONS (1)
  - Long QT syndrome [Recovered/Resolved]
